FAERS Safety Report 18277301 (Version 3)
Quarter: 2020Q4

REPORT INFORMATION
  Report Type: Spontaneous
  Country: CA (occurrence: CA)
  Receive Date: 20200917
  Receipt Date: 20201028
  Transmission Date: 20210113
  Serious: Yes (Other)
  Sender: FDA-Public Use
  Company Number: CA-PFIZER INC-2020359230

PATIENT
  Age: 21 Year
  Sex: Male

DRUGS (3)
  1. INFLECTRA [Concomitant]
     Active Substance: INFLIXIMAB-DYYB
     Indication: CROHN^S DISEASE
     Dosage: 5MG/KG AT Q 0, 2, 6 WEEKS, THEN EVERY 8 WEEKS
     Route: 042
     Dates: start: 20200924
  2. METHOTREXATE SODIUM. [Suspect]
     Active Substance: METHOTREXATE SODIUM
     Indication: CROHN^S DISEASE
     Dosage: 20 MG, WEEKLY
     Route: 065
     Dates: start: 202001
  3. INFLECTRA [Concomitant]
     Active Substance: INFLIXIMAB-DYYB
     Dosage: 5MG/KG
     Route: 042
     Dates: start: 20201008, end: 20201008

REACTIONS (7)
  - Off label use [Unknown]
  - Therapeutic product effect incomplete [Unknown]
  - Diarrhoea [Recovering/Resolving]
  - Anal fistula [Not Recovered/Not Resolved]
  - Product use in unapproved indication [Unknown]
  - Rectal haemorrhage [Unknown]
  - Ulcer [Unknown]
